FAERS Safety Report 6559184-1 (Version None)
Quarter: 2010Q1

REPORT INFORMATION
  Report Type: 
  Country: None (occurrence: None)
  Receive Date: 20100129
  Receipt Date: 20090923
  Transmission Date: 20100710
  Serious: Yes (Other)
  Sender: FDA-Public Use
  Company Number: US-ABBOTT-09P-163-0577455-00

PATIENT
  Sex: Male

DRUGS (6)
  1. HUMIRA [Suspect]
     Indication: PSORIASIS
     Route: 058
     Dates: start: 20070711, end: 20090501
  2. HUMIRA [Suspect]
     Route: 058
     Dates: start: 20090514, end: 20090914
  3. TOPROL-XL [Concomitant]
     Indication: HYPERTENSION
  4. DEPAKOTE [Concomitant]
     Indication: DRUG USE FOR UNKNOWN INDICATION
  5. UNKNOWN HYPERTENTION MEDICATION [Concomitant]
     Indication: HYPERTENSION
  6. ADVIL [Concomitant]
     Indication: ARTHRITIS

REACTIONS (5)
  - BODY TINEA [None]
  - FUNGAL INFECTION [None]
  - NASOPHARYNGITIS [None]
  - PSORIASIS [None]
  - TINEA CRURIS [None]
